FAERS Safety Report 6920332-2 (Version None)
Quarter: 2010Q3

REPORT INFORMATION
  Report Type: 
  Country: None (occurrence: None)
  Receive Date: 20100809
  Receipt Date: 20100731
  Transmission Date: 20110219
  Serious: No
  Sender: FDA-Public Use
  Company Number: ADR-001

PATIENT

DRUGS (1)
  1. OXYGEN [Suspect]
     Dates: end: 20100713

REACTIONS (1)
  - NO ADVERSE EVENT [None]
